FAERS Safety Report 7860850-6 (Version None)
Quarter: 2011Q4

REPORT INFORMATION
  Report Type: 
  Country: None (occurrence: None)
  Receive Date: 20111027
  Receipt Date: 20111018
  Transmission Date: 20120403
  Serious: Yes (Hospitalization, Disabling, Other)
  Sender: FDA-Public Use
  Company Number: BR-ASTRAZENECA-2011SE63448

PATIENT
  Age: 75 Year
  Sex: Female
  Weight: 60 kg

DRUGS (5)
  1. INDAPEN [Concomitant]
     Route: 048
     Dates: start: 20050101
  2. CRESTOR [Suspect]
     Indication: HYPERCHOLESTEROLAEMIA
     Route: 048
     Dates: start: 20050101, end: 20111001
  3. CRESTOR [Suspect]
     Route: 048
     Dates: start: 20111001
  4. ASPIRIN PREVENT [Concomitant]
     Indication: CAROTID ARTERY DISEASE
     Route: 048
     Dates: start: 20010101
  5. DIOVAN [Concomitant]
     Route: 048
     Dates: start: 20010101

REACTIONS (8)
  - GAIT DISTURBANCE [None]
  - PAIN IN EXTREMITY [None]
  - DRUG INEFFECTIVE [None]
  - INTERVERTEBRAL DISC PROTRUSION [None]
  - BLOOD CHOLESTEROL INCREASED [None]
  - DIZZINESS [None]
  - NOSOCOMIAL INFECTION [None]
  - CONDITION AGGRAVATED [None]
